FAERS Safety Report 10511066 (Version 4)
Quarter: 2014Q4

REPORT INFORMATION
  Report Type: Report from Study
  Country: ES (occurrence: ES)
  Receive Date: 20141010
  Receipt Date: 20141205
  Transmission Date: 20150528
  Serious: Yes (Death, Hospitalization)
  Sender: FDA-Public Use
  Company Number: ES-ASTELLAS-2014EU013188

PATIENT
  Age: 81 Year
  Sex: Female
  Weight: 50 kg

DRUGS (14)
  1. OMEPRAZOLE. [Concomitant]
     Active Substance: OMEPRAZOLE
     Indication: PROPHYLAXIS
     Route: 048
  2. NOLOTIL                            /00473101/ [Concomitant]
     Active Substance: METAMIZOLE
     Indication: PAIN PROPHYLAXIS
     Route: 048
     Dates: start: 20140520, end: 20140819
  3. PARACETAMOL [Concomitant]
     Active Substance: ACETAMINOPHEN
     Indication: PAIN PROPHYLAXIS
     Route: 048
     Dates: start: 20140812, end: 20140819
  4. ENALAPRIL [Concomitant]
     Active Substance: ENALAPRIL
     Indication: HYPERTENSION
     Route: 048
  5. DIAMICRON [Concomitant]
     Active Substance: GLICLAZIDE
     Indication: DIABETES MELLITUS
     Dosage: UNK UNK, UNKNOWN FREQ.
     Route: 048
  6. ADIRO [Concomitant]
     Active Substance: ASPIRIN
     Indication: THROMBOSIS PROPHYLAXIS
     Dosage: UNK UNK, UNKNOWN FREQ.
     Route: 048
  7. BLINDED ENZALUTAMIDE [Suspect]
     Active Substance: ENZALUTAMIDE
     Indication: BREAST CANCER
     Route: 048
     Dates: start: 20140620, end: 20140730
  8. ENANTYUM [Concomitant]
     Active Substance: DEXKETOPROFEN TROMETAMOL
     Indication: PAIN PROPHYLAXIS
     Route: 048
     Dates: start: 20140819
  9. EXEMESTANE. [Suspect]
     Active Substance: EXEMESTANE
     Indication: BREAST CANCER
     Route: 048
     Dates: start: 20140620, end: 20140730
  10. LEXATIN                            /00424801/ [Concomitant]
     Active Substance: BROMAZEPAM
     Indication: INSOMNIA
     Route: 048
  11. PREDNISONE. [Concomitant]
     Active Substance: PREDNISONE
     Indication: ADVERSE EVENT
     Route: 048
     Dates: start: 20140717, end: 20140720
  12. DUROGESIC [Concomitant]
     Active Substance: FENTANYL
     Indication: BONE PAIN
     Dosage: 12 ?G, OTHER, ONE IN 72 HOUR
     Route: 062
  13. IDEOS [Concomitant]
     Active Substance: CALCIUM CARBONATE\CHOLECALCIFEROL
     Indication: PROPHYLAXIS
     Dosage: UNK UNK, UNKNOWN FREQ.
     Route: 048
  14. SIMVASTATIN. [Concomitant]
     Active Substance: SIMVASTATIN
     Indication: HYPERCHOLESTEROLAEMIA
     Dosage: UNK UNK, UNKNOWN FREQ.
     Route: 048

REACTIONS (2)
  - Hyponatraemia [Not Recovered/Not Resolved]
  - General physical health deterioration [Fatal]

NARRATIVE: CASE EVENT DATE: 20140731
